FAERS Safety Report 8308378-3 (Version None)
Quarter: 2012Q2

REPORT INFORMATION
  Report Type: 
  Country: None (occurrence: None)
  Receive Date: 20120424
  Receipt Date: 20120416
  Transmission Date: 20120825
  Serious: Yes (Hospitalization)
  Sender: FDA-Public Use
  Company Number: US-BAYER-2012-036777

PATIENT
  Age: 20 Year
  Sex: Female

DRUGS (3)
  1. BEYAZ [Suspect]
     Indication: PREMENSTRUAL SYNDROME
  2. BEYAZ [Suspect]
     Indication: CONTRACEPTION
     Dosage: UNK
     Route: 048
     Dates: end: 20120411
  3. BEYAZ [Suspect]
     Indication: ACNE

REACTIONS (3)
  - DYSPNOEA [None]
  - CHEST PAIN [None]
  - PULMONARY THROMBOSIS [None]
